FAERS Safety Report 14612261 (Version 2)
Quarter: 2018Q1

REPORT INFORMATION
  Report Type: Report from Study
  Country: FR (occurrence: FR)
  Receive Date: 20180308
  Receipt Date: 20180313
  Transmission Date: 20180509
  Serious: Yes (Death, Hospitalization)
  Sender: FDA-Public Use
  Company Number: PHHY2018FR037776

PATIENT
  Age: 87 Year
  Sex: Male
  Weight: 63 kg

DRUGS (4)
  1. FUROSEMID [Concomitant]
     Active Substance: FUROSEMIDE
     Indication: CARDIAC FAILURE
     Dosage: 500 OT, UNK
     Route: 065
     Dates: start: 20160621
  2. ENTRESTO [Suspect]
     Active Substance: SACUBITRIL\VALSARTAN
     Indication: CARDIAC FAILURE
     Dosage: 1 DF (24 MG SACUBITRIL AND 26 MG VALSARTAN), BID (1-0-1)
     Route: 048
     Dates: start: 20161122
  3. AMIODARONE [Concomitant]
     Active Substance: AMIODARONE
     Indication: ARRHYTHMIA
     Dosage: 200 OT, UNK
     Route: 065
     Dates: start: 20161122
  4. PROCORALAN [Concomitant]
     Active Substance: IVABRADINE
     Indication: CARDIAC FAILURE
     Dosage: 5 OT, BID
     Route: 065
     Dates: start: 20170816

REACTIONS (8)
  - Poor peripheral circulation [Unknown]
  - Cardiac failure [Fatal]
  - Weight decreased [Unknown]
  - Anuria [Unknown]
  - Oedema [Fatal]
  - Dyspnoea [Fatal]
  - Crepitations [Unknown]
  - Troponin increased [Unknown]

NARRATIVE: CASE EVENT DATE: 20171022
